FAERS Safety Report 13512446 (Version 1)
Quarter: 2017Q2

REPORT INFORMATION
  Report Type: Spontaneous
  Country: FR (occurrence: FR)
  Receive Date: 20170504
  Receipt Date: 20170504
  Transmission Date: 20170830
  Serious: Yes (Hospitalization)
  Sender: FDA-Public Use
  Company Number: FR-ORION CORPORATION ORION PHARMA-TREX2017-1293

PATIENT
  Sex: Female

DRUGS (8)
  1. IMETH [Suspect]
     Active Substance: METHOTREXATE SODIUM
     Indication: TEMPORAL ARTERITIS
     Dosage: STRENGTH: 10 MG; ON SATURDAYS
     Route: 048
     Dates: start: 2012, end: 201612
  2. LASILIX [Concomitant]
     Active Substance: FUROSEMIDE
     Dosage: STRENGTH: 40 MG
     Route: 048
  3. FUNGIZONE [Concomitant]
     Active Substance: AMPHOTERICIN B
     Route: 048
     Dates: start: 201611, end: 201612
  4. ESOMEPRAZOLE [Concomitant]
     Active Substance: ESOMEPRAZOLE
     Route: 048
  5. PAROXETINE. [Concomitant]
     Active Substance: PAROXETINE
     Route: 048
  6. SOLUPRED [Concomitant]
     Active Substance: PREDNISOLONE
     Indication: TEMPORAL ARTERITIS
     Route: 065
     Dates: start: 2012
  7. BISOCE [Concomitant]
     Active Substance: BISOPROLOL
     Dosage: STRENGTH: 5 MG
     Route: 048
  8. PREDNISONE. [Concomitant]
     Active Substance: PREDNISONE
     Route: 048
     Dates: start: 2012

REACTIONS (10)
  - Product use in unapproved indication [Unknown]
  - Abdominal pain [Unknown]
  - Pulmonary fibrosis [Unknown]
  - Pleural effusion [Unknown]
  - Urinary tract infection staphylococcal [Unknown]
  - Deep vein thrombosis [Unknown]
  - General physical health deterioration [Unknown]
  - Respiratory failure [Unknown]
  - Lung disorder [Not Recovered/Not Resolved]
  - Escherichia urinary tract infection [Unknown]

NARRATIVE: CASE EVENT DATE: 2012
